FAERS Safety Report 19219612 (Version 2)
Quarter: 2021Q2

REPORT INFORMATION
  Report Type: Report from Study
  Country: BG (occurrence: BG)
  Receive Date: 20210506
  Receipt Date: 20210623
  Transmission Date: 20210717
  Serious: Yes (Hospitalization)
  Sender: FDA-Public Use
  Company Number: BG-CELLTRION INC.-2021BG005761

PATIENT

DRUGS (8)
  1. ANALGIN (BULGARIA) [Concomitant]
     Dosage: ONGOING = NOT CHECKED
     Dates: start: 20191015, end: 20200824
  2. ENALAPRIL [Concomitant]
     Active Substance: ENALAPRIL
     Dosage: UNK (ONGOING = CHECKED)
     Dates: start: 20091215
  3. ZARZIO [Concomitant]
     Active Substance: FILGRASTIM
     Indication: LEUKOPENIA
     Dosage: ONGOING = NOT CHECKED
     Dates: start: 20200709, end: 20200709
  4. TRASTUZUMAB (UNKNOWN) [Suspect]
     Active Substance: TRASTUZUMAB
     Indication: BREAST CANCER
     Dosage: 450 MG; MOST RECENT DOSE PRIOR TO THE EVENT: 27/NOV/2019
     Route: 042
     Dates: start: 20191031, end: 20191031
  5. ZOLEDRONIC ACID [Suspect]
     Active Substance: ZOLEDRONIC ACID
     Indication: BREAST CANCER
     Dosage: 4 MG, EVERY 4 WEEK
     Route: 042
     Dates: start: 20191114
  6. TRAMADOL. [Concomitant]
     Active Substance: TRAMADOL
     Dosage: UNK (ONGOING = CHECKED)
     Dates: start: 20200824
  7. BINOCRIT [Concomitant]
     Active Substance: ERYTHROPOIETIN
     Indication: ANAEMIA
     Dosage: ONGOING = NOT CHECKED
     Dates: start: 20200710, end: 20200710
  8. DOCETAXEL. [Suspect]
     Active Substance: DOCETAXEL
     Indication: BREAST CANCER
     Dosage: 75 MG, EVERY 3 WEEKS
     Route: 042
     Dates: start: 20191031

REACTIONS (2)
  - Underdose [Unknown]
  - Anaemia [Recovered/Resolved with Sequelae]

NARRATIVE: CASE EVENT DATE: 20200807
